FAERS Safety Report 23779666 (Version 2)
Quarter: 2025Q2

REPORT INFORMATION
  Report Type: Spontaneous
  Country: FR (occurrence: FR)
  Receive Date: 20240424
  Receipt Date: 20250428
  Transmission Date: 20250716
  Serious: Yes (Hospitalization)
  Sender: TEVA
  Company Number: None

PATIENT
  Age: 78 Year
  Sex: Male
  Weight: 74 kg

DRUGS (2)
  1. BISOPROLOL [Suspect]
     Active Substance: BISOPROLOL
     Indication: Angina unstable
     Route: 048
     Dates: start: 20240308, end: 20240311
  2. BISOPROLOL [Suspect]
     Active Substance: BISOPROLOL
     Indication: Angina unstable
     Dosage: BISOPROLOL FUMARATE
     Route: 048
     Dates: start: 20240304, end: 20240307

REACTIONS (2)
  - Gastrointestinal disorder [Recovered/Resolved]
  - Eosinophilia [Recovered/Resolved]

NARRATIVE: CASE EVENT DATE: 20240305
